FAERS Safety Report 8143891 (Version 2)
Quarter: 2012Q4

REPORT INFORMATION
  Report Type: Report from Study
  Country: FR (occurrence: FR)
  Receive Date: 20110920
  Receipt Date: 20120912
  Transmission Date: 20130627
  Serious: Yes (Hospitalization)
  Sender: FDA-Public Use
  Company Number: FR-B.I. PHARMACEUTICALS,INC./RIDGEFIELD-2011-FF-00846FF

PATIENT
  Age: 82 Year
  Sex: Female
  Weight: 55 kg

DRUGS (6)
  1. PRADAXA [Suspect]
     Indication: THROMBOSIS PROPHYLAXIS
     Dosage: 150 mg
     Route: 048
     Dates: start: 20110908, end: 20110912
  2. FLUDEX [Concomitant]
     Indication: HYPERTENSION
     Dosage: 1.5 mg
     Route: 048
     Dates: start: 20110909
  3. EXFORGE [Concomitant]
     Indication: HYPERTENSION
     Route: 048
     Dates: start: 20110909
  4. PRAVASTATIN [Concomitant]
     Indication: HYPERCHOLESTEROLAEMIA
     Dosage: 20 mg
     Route: 048
     Dates: start: 20110909
  5. TARDYFERON [Concomitant]
     Indication: ANAEMIA
     Dosage: 160 mg
     Route: 048
     Dates: start: 20110909
  6. SPECIAFOLDINE [Concomitant]
     Indication: ANAEMIA
     Dosage: 15 mg
     Route: 048
     Dates: start: 20110909

REACTIONS (1)
  - Deep vein thrombosis [Recovered/Resolved]
